FAERS Safety Report 22970790 (Version 6)
Quarter: 2023Q4

REPORT INFORMATION
  Report Type: Spontaneous
  Country: TR (occurrence: TR)
  Receive Date: 20230922
  Receipt Date: 20231103
  Transmission Date: 20240110
  Serious: No
  Sender: FDA-Public Use
  Company Number: TR-PFIZER INC-PV202300148748

PATIENT
  Age: 10 Year
  Sex: Female

DRUGS (1)
  1. ENBREL [Suspect]
     Active Substance: ETANERCEPT
     Indication: Adenosine deaminase 2 deficiency
     Dosage: 25 MG, ONE TIME IN EVERY 2 WEEK
     Dates: start: 2015

REACTIONS (3)
  - Injection site pain [Not Recovered/Not Resolved]
  - Off label use [Unknown]
  - Off label use [Unknown]

NARRATIVE: CASE EVENT DATE: 20150101
